FAERS Safety Report 5290671-2 (Version None)
Quarter: 2007Q2

REPORT INFORMATION
  Report Type: 
  Country: None (occurrence: None)
  Receive Date: 20070405
  Receipt Date: 20070405
  Transmission Date: 20071010
  Serious: Yes (Hospitalization)
  Sender: FDA-Public Use
  Company Number: None

PATIENT
  Sex: Male
  Weight: 100.7 kg

DRUGS (8)
  1. CIPROFLOXACIN [Suspect]
     Indication: SUBCUTANEOUS ABSCESS
     Dosage: 500MG PO Q12H
     Route: 048
     Dates: start: 20061206, end: 20061212
  2. MONTELUKAST SODIUM [Concomitant]
  3. LANSOPRAZOLE [Concomitant]
  4. CETRIZINE [Concomitant]
  5. ALPRAZOLAM [Concomitant]
  6. M.V.I. [Concomitant]
  7. PSEUDOEPHEDRINE HCL [Concomitant]
  8. TARCEVA [Concomitant]

REACTIONS (3)
  - ERYTHEMA [None]
  - SWELLING [None]
  - TENDERNESS [None]
